FAERS Safety Report 4398092-1 (Version None)
Quarter: 2004Q3

REPORT INFORMATION
  Report Type: 
  Country: None (occurrence: None)
  Receive Date: 20040713
  Receipt Date: 20040630
  Transmission Date: 20050211
  Serious: Yes (Hospitalization)
  Sender: FDA-Public Use
  Company Number: 2004045440

PATIENT
  Age: 72 Year
  Sex: Female

DRUGS (2)
  1. AMLODIPINE [Suspect]
     Indication: HYPERTENSION
     Dosage: ORAL
     Route: 048
  2. TEMOCAPRIL (TEMOCAPRIL) [Suspect]
     Indication: HYPERTENSION
     Dosage: ORAL
     Route: 048

REACTIONS (7)
  - BRADYCARDIA [None]
  - EJECTION FRACTION DECREASED [None]
  - EXERCISE TEST ABNORMAL [None]
  - LOSS OF CONSCIOUSNESS [None]
  - SHOCK [None]
  - SINUS BRADYCARDIA [None]
  - SYNCOPE [None]
